FAERS Safety Report 5765929-0 (Version None)
Quarter: 2008Q2

REPORT INFORMATION
  Report Type: 
  Country: None (occurrence: None)
  Receive Date: 20080611
  Receipt Date: 20070808
  Transmission Date: 20081010
  Serious: No
  Sender: FDA-Public Use
  Company Number: US-BRISTOL-MYERS SQUIBB COMPANY-13871900

PATIENT
  Age: 70 Year
  Sex: Male
  Weight: 63 kg

DRUGS (11)
  1. SINEMET [Suspect]
     Indication: PARKINSON'S DISEASE
     Dates: start: 19800101
  2. SINEMET CR [Suspect]
     Indication: PARKINSON'S DISEASE
  3. STALEVO 100 [Suspect]
     Indication: PARKINSON'S DISEASE
  4. LORAZEPAM [Concomitant]
  5. TRAZODONE HCL [Concomitant]
  6. CORAL CALCIUM [Concomitant]
  7. VITAMIN B COMPLEX CAP [Concomitant]
  8. MINERAL TAB [Concomitant]
  9. VITAMIN E [Concomitant]
  10. OMEGA 3 FISH OIL [Concomitant]
  11. VALERIAN ROOT [Concomitant]

REACTIONS (8)
  - DRUG INEFFECTIVE [None]
  - DYSKINESIA [None]
  - GAIT DISTURBANCE [None]
  - HALLUCINATION [None]
  - LIPASE INCREASED [None]
  - MENTAL IMPAIRMENT [None]
  - PALPITATIONS [None]
  - PANIC ATTACK [None]
